FAERS Safety Report 10510010 (Version 1)
Quarter: 2014Q4

REPORT INFORMATION
  Report Type: Spontaneous
  Country: US (occurrence: None)
  Receive Date: 20141008
  Receipt Date: 20141008
  Transmission Date: 20150528
  Serious: Yes (Hospitalization)
  Sender: FDA-Public Use
  Company Number: INT_00446_2014

PATIENT
  Age: 26 Year
  Sex: Female

DRUGS (6)
  1. CISPLATIN (HQ SPECIALTY) [Suspect]
     Active Substance: CISPLATIN
     Indication: OVARIAN CANCER
     Dosage: OVER 4 HOURS ON DAY 1, FOR 6 CYCLES
     Route: 042
  2. ETOPOSIDE. [Suspect]
     Active Substance: ETOPOSIDE
     Indication: OVARIAN CANCER
     Route: 042
  3. DOXORUBICIN [Suspect]
     Active Substance: DOXORUBICIN
     Indication: OVARIAN CANCER
     Dosage: OVER 30 MINUTES ON DAY 3 FOR 6 CYCLES
     Route: 042
  4. VINBLASTINE [Suspect]
     Active Substance: VINBLASTINE
     Indication: OVARIAN CANCER
     Dosage: OVER 30 MIN ON DAY 1 FOR 6 CYCLES
     Route: 042
  5. CYCLOPHOSPHAMIDE. [Suspect]
     Active Substance: CYCLOPHOSPHAMIDE
     Indication: OVARIAN CANCER
     Dosage: OVER 60 MINUTES ON DAY 2, FOR 6 CYCLES
     Route: 042
  6. BLEOMYCIN [Suspect]
     Active Substance: BLEOMYCIN SULFATE
     Indication: OVARIAN CANCER
     Dosage: OVER 24 HOURS ON DAY 2, FOR 6 CYCLES
     Route: 042

REACTIONS (1)
  - Febrile neutropenia [None]
